FAERS Safety Report 5394724-X (Version None)
Quarter: 2007Q3

REPORT INFORMATION
  Report Type: 
  Country: None (occurrence: None)
  Receive Date: 20070723
  Receipt Date: 20070711
  Transmission Date: 20080115
  Serious: Yes (Other)
  Sender: FDA-Public Use
  Company Number: JP-PFIZER INC-2007051503

PATIENT
  Sex: Female

DRUGS (5)
  1. CEFPODOXIME PROXETIL TABLET [Suspect]
     Indication: UPPER RESPIRATORY TRACT INFLAMMATION
     Dosage: DAILY DOSE:100MG
     Route: 048
     Dates: start: 20051011, end: 20051012
  2. LOXONIN [Suspect]
     Indication: UPPER RESPIRATORY TRACT INFLAMMATION
     Dosage: DAILY DOSE:60MG
     Route: 048
     Dates: start: 20051011, end: 20051015
  3. MERCAZOLE [Suspect]
     Indication: HYPERTHYROIDISM
     Route: 048
     Dates: start: 20050930, end: 20051011
  4. MERCAZOLE [Suspect]
     Route: 048
     Dates: start: 20051012, end: 20051017
  5. INDERAL [Suspect]
     Indication: PALPITATIONS
     Route: 048
     Dates: start: 20050910, end: 20051017

REACTIONS (10)
  - ARTHRALGIA [None]
  - CHILLS [None]
  - DRUG ERUPTION [None]
  - GENERALISED ERYTHEMA [None]
  - HEPATIC FUNCTION ABNORMAL [None]
  - LIVER DISORDER [None]
  - PHARYNGITIS [None]
  - PRURITUS [None]
  - PYREXIA [None]
  - URTICARIA [None]
